FAERS Safety Report 21452202 (Version 1)
Quarter: 2022Q4

REPORT INFORMATION
  Report Type: Report from Study
  Country: JP (occurrence: None)
  Receive Date: 20221013
  Receipt Date: 20221013
  Transmission Date: 20230113
  Serious: Yes (Hospitalization, Other)
  Sender: FDA-Public Use
  Company Number: 2022A267148

PATIENT
  Age: 65 Year
  Sex: Male
  Weight: 53 kg

DRUGS (31)
  1. DURVALUMAB [Suspect]
     Active Substance: DURVALUMAB
     Indication: Non-small cell lung cancer
     Route: 042
     Dates: start: 20210615, end: 20210615
  2. DURVALUMAB [Suspect]
     Active Substance: DURVALUMAB
     Indication: Non-small cell lung cancer
     Route: 042
     Dates: start: 20220614, end: 20220614
  3. CARBOPLATIN [Suspect]
     Active Substance: CARBOPLATIN
     Indication: Non-small cell lung cancer
     Route: 042
     Dates: start: 20210405, end: 20210405
  4. CARBOPLATIN [Suspect]
     Active Substance: CARBOPLATIN
     Indication: Non-small cell lung cancer
     Route: 042
     Dates: start: 20210513, end: 20210513
  5. PACLITAXEL [Suspect]
     Active Substance: PACLITAXEL
     Indication: Non-small cell lung cancer
     Route: 042
     Dates: start: 20210405, end: 20210405
  6. PACLITAXEL [Suspect]
     Active Substance: PACLITAXEL
     Indication: Non-small cell lung cancer
     Route: 042
     Dates: start: 20210513, end: 20210513
  7. LOXOPROFEN SODIUM DIHYDRATE [Concomitant]
     Active Substance: LOXOPROFEN SODIUM DIHYDRATE
     Indication: Adverse event
     Dosage: 1-UNITS NOS AS NEEDED
     Route: 061
     Dates: start: 20210705
  8. TENELIGLIPTIN HYDROBROMIDE HYDRATE [Concomitant]
     Active Substance: TENELIGLIPTIN HYDROBROMIDE HYDRATE
     Indication: Adverse event
     Dosage: DAILY; PER DAY
     Route: 048
     Dates: start: 20210712
  9. ALENDRONATE SODIUM [Concomitant]
     Active Substance: ALENDRONATE SODIUM
     Indication: Prophylaxis
     Dosage: ONE TIME PER WEEK
     Route: 048
     Dates: start: 20210717
  10. LOXOPROFEN SODIUM HYDRATE(GEL) [Concomitant]
     Indication: Adverse event
     Dosage: AS NEEDED
     Route: 061
     Dates: start: 20210719
  11. BUCILLAMINE [Concomitant]
     Active Substance: BUCILLAMINE
     Indication: Adverse event
     Dosage: BD; TWICE PER DAY
     Route: 048
     Dates: start: 20210817
  12. TRAMADOL HYDROCHLORIDE [Concomitant]
     Active Substance: TRAMADOL HYDROCHLORIDE
     Indication: Adverse event
     Dosage: AS NEEDED
     Route: 048
     Dates: start: 20210902
  13. VONOPRAZAN FUMARATE [Concomitant]
     Active Substance: VONOPRAZAN FUMARATE
     Indication: Adverse event
     Dosage: DAILY; PER DAY
     Route: 048
     Dates: start: 20211116
  14. IGURATIMOD [Concomitant]
     Active Substance: IGURATIMOD
     Indication: Adverse event
     Dosage: BD; TWICE PER DAY
     Route: 048
     Dates: start: 20220111
  15. BETAMETHASONE BUTYRATE PROPIONATE [Concomitant]
     Active Substance: BETAMETHASONE BUTYRATE PROPIONATE
     Indication: Adverse event
     Dosage: AS NEEDED
     Route: 061
     Dates: start: 20220208
  16. RUPATADINE FUMARATE [Concomitant]
     Active Substance: RUPATADINE FUMARATE
     Indication: Adverse event
     Dosage: DAILY; PER DAY
     Route: 048
     Dates: start: 20220405
  17. PEMAFIBRATE [Concomitant]
     Active Substance: PEMAFIBRATE
     Indication: Adverse event
     Dosage: BD; TWICE PER DAY
     Route: 048
     Dates: start: 20220405
  18. PREDNISOLONE [Concomitant]
     Active Substance: PREDNISOLONE
     Indication: Adverse event
     Dosage: DAILY; PER DAY
     Route: 048
     Dates: start: 20220419
  19. MEFENAMIC ACID [Concomitant]
     Active Substance: MEFENAMIC ACID
     Indication: Adverse event
     Dosage: 3 TIMES PER DAY
     Route: 048
     Dates: start: 20220627
  20. ACETAMINOPHEN [Concomitant]
     Active Substance: ACETAMINOPHEN
     Indication: Adverse event
     Dosage: 3 TIMES PER DAY
     Route: 048
     Dates: start: 20220627, end: 20220711
  21. HEPARINOID [Concomitant]
     Indication: Adverse event
     Dosage: AS NEEDED
     Route: 061
     Dates: start: 20210413
  22. LASCUFLOXACIN HYDROCHLORIDE [Concomitant]
     Active Substance: LASCUFLOXACIN HYDROCHLORIDE
     Indication: Adverse event
     Dosage: DAILY; PER DAY
     Route: 048
     Dates: start: 20220713, end: 20220716
  23. LIDOCAINE [Concomitant]
     Active Substance: LIDOCAINE
     Indication: Adverse event
     Dosage: 3 TIMES PER DAY
     Route: 061
     Dates: start: 20220627
  24. TRANEXAMIC ACID [Concomitant]
     Active Substance: TRANEXAMIC ACID
     Indication: Adverse event
     Dosage: 750 MG 3 TIMES PER DAY
     Route: 048
     Dates: start: 20220713, end: 20220716
  25. HYDROCORTISONE SODIUM SUCCINATE [Concomitant]
     Active Substance: HYDROCORTISONE SODIUM SUCCINATE
     Indication: Adverse event
     Dosage: 300 MG ONCE
     Route: 042
     Dates: start: 20220720, end: 20220720
  26. FLORID [CLOMIFENE CITRATE] [Concomitant]
     Route: 065
  27. MITIGLINIDE CALCIUM HYDRATE [Concomitant]
     Active Substance: MITIGLINIDE CALCIUM HYDRATE
     Route: 065
  28. CANAGLIFLOZIN [Concomitant]
     Active Substance: CANAGLIFLOZIN
     Dosage: 100 MG
     Route: 065
     Dates: start: 20220308, end: 20220727
  29. BUDESONIDE\FORMOTEROL FUMARATE DIHYDRATE [Concomitant]
     Active Substance: BUDESONIDE\FORMOTEROL FUMARATE DIHYDRATE
     Dosage: AS NEEDED
     Route: 065
     Dates: start: 20210412
  30. FINE GRANULES FOR GARGLE [Concomitant]
     Route: 065
     Dates: start: 20220627
  31. MICONAZOLE [Concomitant]
     Active Substance: MICONAZOLE
     Dates: start: 20220704, end: 20220711

REACTIONS (1)
  - Pemphigus [Recovering/Resolving]

NARRATIVE: CASE EVENT DATE: 20220721
